FAERS Safety Report 8221143-0 (Version None)
Quarter: 2012Q1

REPORT INFORMATION
  Report Type: 
  Country: None (occurrence: None)
  Receive Date: 20120307
  Receipt Date: 20101227
  Transmission Date: 20120608
  Serious: No
  Sender: FDA-Public Use
  Company Number: PHHY2010US88735

PATIENT
  Sex: Female

DRUGS (4)
  1. AFINITOR [Suspect]
  2. DULCOLAX [Concomitant]
  3. SANDOSTATIN [Concomitant]
  4. AVASTIN [Concomitant]

REACTIONS (1)
  - HEADACHE [None]
